FAERS Safety Report 6529344-4 (Version None)
Quarter: 2010Q1

REPORT INFORMATION
  Report Type: 
  Country: None (occurrence: None)
  Receive Date: 20100107
  Receipt Date: 20100105
  Transmission Date: 20100710
  Serious: Yes (Death)
  Sender: FDA-Public Use
  Company Number: US-ASTRAZENECA-2010SE00412

PATIENT
  Age: 59 Year
  Sex: Male

DRUGS (2)
  1. QUETIAPINE [Suspect]
     Route: 048
  2. FENTANYL CITRATE [Suspect]
     Route: 062

REACTIONS (4)
  - CARDIAC ARREST [None]
  - COMPLETED SUICIDE [None]
  - RESPIRATORY ARREST [None]
  - THERAPEUTIC AGENT TOXICITY [None]
